FAERS Safety Report 25034669 (Version 3)
Quarter: 2025Q3

REPORT INFORMATION
  Report Type: Report from Study
  Country: US (occurrence: US)
  Receive Date: 20250304
  Receipt Date: 20250809
  Transmission Date: 20251020
  Serious: Yes (Other)
  Sender: ALEXION PHARMACEUTICALS
  Company Number: US-AstraZeneca-CH-00817296A

PATIENT
  Sex: Female

DRUGS (2)
  1. ULTOMIRIS [Suspect]
     Active Substance: RAVULIZUMAB-CWVZ
     Route: 065
  2. INFLUENZA VIRUS VACCINE [Concomitant]
     Active Substance: INFLUENZA VIRUS VACCINE
     Indication: Immunisation
     Route: 065

REACTIONS (9)
  - Autoimmune disorder [Unknown]
  - Nasopharyngitis [Unknown]
  - Fatigue [Unknown]
  - Muscular weakness [Unknown]
  - Cough [Unknown]
  - Asthenia [Unknown]
  - Stress at work [Unknown]
  - Vein rupture [Unknown]
  - Illness [Unknown]

NARRATIVE: CASE EVENT DATE: 20250201
